FAERS Safety Report 16828251 (Version 1)
Quarter: 2019Q3

REPORT INFORMATION
  Report Type: Spontaneous
  Country: US (occurrence: US)
  Receive Date: 20190919
  Receipt Date: 20190919
  Transmission Date: 20191005
  Serious: No
  Sender: FDA-Public Use
  Company Number: US-FERRINGPH-2019FE03526

PATIENT
  Age: 77 Year
  Sex: Female
  Weight: 90.7 kg

DRUGS (1)
  1. CLENPIQ [Suspect]
     Active Substance: ANHYDROUS CITRIC ACID\MAGNESIUM OXIDE\SODIUM PICOSULFATE
     Indication: BOWEL PREPARATION
     Dosage: 2 BOTTLES
     Route: 048
     Dates: start: 20190606, end: 20190607

REACTIONS (3)
  - Constipation [Recovered/Resolved]
  - Blood sodium decreased [Not Recovered/Not Resolved]
  - Diarrhoea [Not Recovered/Not Resolved]

NARRATIVE: CASE EVENT DATE: 20190606
